FAERS Safety Report 13700810 (Version 1)
Quarter: 2017Q2

REPORT INFORMATION
  Report Type: Spontaneous
  Country: US (occurrence: US)
  Receive Date: 20170628
  Receipt Date: 20170628
  Transmission Date: 20170830
  Serious: Yes (Hospitalization, Other)
  Sender: FDA-Public Use
  Company Number: None

PATIENT
  Age: 16 Day
  Sex: Female

DRUGS (4)
  1. CHLOROTHIAZIDE. [Concomitant]
     Active Substance: CHLOROTHIAZIDE
  2. DIAZOXIDE 50 MG/ML [Suspect]
     Active Substance: DIAZOXIDE
     Indication: HYPOGLYCAEMIA
     Dates: start: 20160222, end: 20170626
  3. CHOLECALCIFEROL [Concomitant]
     Active Substance: CHOLECALCIFEROL
  4. SODIUM CITRATE-CITRIC ACID [Concomitant]
     Active Substance: CITRIC ACID MONOHYDRATE\TRISODIUM CITRATE DIHYDRATE

REACTIONS (11)
  - Hyperglycaemia [None]
  - Hyponatraemia [None]
  - Hyperinsulinism [None]
  - Pulmonary oedema [None]
  - Metabolic acidosis [None]
  - Grunting [None]
  - Head titubation [None]
  - Stress [None]
  - Dyspnoea [None]
  - Oxygen saturation decreased [None]
  - Hypoglycaemia [None]

NARRATIVE: CASE EVENT DATE: 20160226
